FAERS Safety Report 15534585 (Version 1)
Quarter: 2018Q4

REPORT INFORMATION
  Report Type: Spontaneous
  Country: US (occurrence: US)
  Receive Date: 20181022
  Receipt Date: 20181022
  Transmission Date: 20190205
  Serious: No
  Sender: FDA-Public Use
  Company Number: US-LUPIN PHARMACEUTICALS INC.-2018-01480

PATIENT
  Age: 28 Year
  Sex: Female
  Weight: 43.99 kg

DRUGS (1)
  1. NIKKI [Suspect]
     Active Substance: DROSPIRENONE\ETHINYL ESTRADIOL
     Indication: CONTRACEPTION
     Dosage: 1 DF (3 MG/0.02 MG), QD
     Route: 048
     Dates: start: 201801

REACTIONS (3)
  - Product dose omission [Recovered/Resolved]
  - No adverse event [Unknown]
  - Product administration error [Unknown]

NARRATIVE: CASE EVENT DATE: 20180219
